FAERS Safety Report 10616971 (Version 1)
Quarter: 2014Q4

REPORT INFORMATION
  Report Type: Spontaneous
  Country: RU (occurrence: RU)
  Receive Date: 20141201
  Receipt Date: 20141201
  Transmission Date: 20150529
  Serious: Yes (Death)
  Sender: FDA-Public Use
  Company Number: RU-SA-2014SA159095

PATIENT
  Age: 62 Year
  Sex: Male

DRUGS (2)
  1. ELOXATIN [Suspect]
     Active Substance: OXALIPLATIN
     Indication: COLON CANCER
     Route: 042
     Dates: start: 2013, end: 2013
  2. IRON [Concomitant]
     Active Substance: IRON

REACTIONS (3)
  - Acute kidney injury [Fatal]
  - Abscess intestinal [Fatal]
  - Peritonitis [Fatal]

NARRATIVE: CASE EVENT DATE: 2013
